FAERS Safety Report 17506802 (Version 1)
Quarter: 2020Q1

REPORT INFORMATION
  Report Type: Spontaneous
  Country: DE (occurrence: DE)
  Receive Date: 20200306
  Receipt Date: 20200306
  Transmission Date: 20200409
  Serious: Yes (Life-Threatening, Other)
  Sender: FDA-Public Use
  Company Number: DE-TORRENT-00016902

PATIENT
  Age: 42 Year
  Sex: Male

DRUGS (1)
  1. LEVOFLOXACIN. [Suspect]
     Active Substance: LEVOFLOXACIN
     Indication: BORDETELLA INFECTION
     Dosage: UNKNOWN

REACTIONS (2)
  - Anaphylactic reaction [Recovering/Resolving]
  - Drug intolerance [Recovering/Resolving]
